FAERS Safety Report 9374379 (Version 5)
Quarter: 2014Q2

REPORT INFORMATION
  Report Type: Spontaneous
  Country: IE (occurrence: IE)
  Receive Date: 20130628
  Receipt Date: 20140418
  Transmission Date: 20141212
  Serious: Yes (Other)
  Sender: FDA-Public Use
  Company Number: PHFR2013IE002945

PATIENT
  Sex: Male

DRUGS (7)
  1. CLOZARIL [Suspect]
     Indication: BIPOLAR DISORDER
     Dosage: UNK
     Route: 048
     Dates: start: 20130520
  2. CLOZARIL [Suspect]
     Indication: PARKINSONISM
  3. PRIADEL [Suspect]
     Indication: SCHIZOAFFECTIVE DISORDER
     Dosage: OVER 20 YEARS
     Route: 048
     Dates: start: 1980, end: 2010
  4. SODIUM VALPROATE [Concomitant]
     Dosage: 300 MG, (AT NIGHT)
  5. QUETIAPINE [Concomitant]
     Dosage: 200 MG, (AT NIGHT)
  6. ZOPICLONE [Concomitant]
     Dosage: 3.75 MG, (AT NIGHT)
  7. BIPERIDEN [Concomitant]
     Dosage: 4 MG, BID

REACTIONS (1)
  - Nephrogenic anaemia [Not Recovered/Not Resolved]
